FAERS Safety Report 16968548 (Version 6)
Quarter: 2020Q3

REPORT INFORMATION
  Report Type: Spontaneous
  Country: GB (occurrence: GB)
  Receive Date: 20191029
  Receipt Date: 20200916
  Transmission Date: 20201102
  Serious: Yes (Disabling, Other)
  Sender: FDA-Public Use
  Company Number: GB-009507513-1910GBR013112

PATIENT
  Age: 68 Year
  Sex: Female
  Weight: 79.82 kg

DRUGS (7)
  1. CIRCADIN [Concomitant]
     Active Substance: MELATONIN
     Dosage: UNK
  2. SINEMET [Suspect]
     Active Substance: CARBIDOPA\LEVODOPA
     Dosage: SINCE STARTING THE MEDICINE IT^S INCREASED. 6 TABLETS X 125 MG
     Route: 048
     Dates: start: 20120101
  3. SINEMET [Suspect]
     Active Substance: CARBIDOPA\LEVODOPA
     Indication: PARKINSON^S DISEASE
     Dosage: SINCE STARTING THE MEDICINE IT^S INCREASED. 6 TABLETS X125 MG
     Route: 048
     Dates: start: 20120101
  4. SINEMET [Suspect]
     Active Substance: CARBIDOPA\LEVODOPA
     Dosage: SINCE STARTING THE MEDICINE IT^S INCREASED. 6 TABLETS X125 MG
     Route: 048
     Dates: start: 20120101
  5. NEUPRO [Concomitant]
     Active Substance: ROTIGOTINE
     Dosage: UNK
  6. RASAGILINE MESYLATE. [Concomitant]
     Active Substance: RASAGILINE MESYLATE
     Dosage: UNK
  7. ENTACAPONE. [Concomitant]
     Active Substance: ENTACAPONE
     Dosage: UNK

REACTIONS (4)
  - Manufacturing issue [Unknown]
  - On and off phenomenon [Unknown]
  - Mobility decreased [Unknown]
  - Parkinsonism [Unknown]

NARRATIVE: CASE EVENT DATE: 20190915
